FAERS Safety Report 4962296-7 (Version None)
Quarter: 2006Q2

REPORT INFORMATION
  Report Type: 
  Country: None (occurrence: None)
  Receive Date: 20060404
  Receipt Date: 20050818
  Transmission Date: 20061013
  Serious: No
  Sender: FDA-Public Use
  Company Number: US-BRISTOL-MYERS SQUIBB COMPANY-13083860

PATIENT
  Sex: Female

DRUGS (2)
  1. HYDREA [Suspect]
     Indication: THROMBOCYTHAEMIA
  2. AGRYLIN [Concomitant]
     Indication: PLATELET COUNT INCREASED

REACTIONS (2)
  - OEDEMA PERIPHERAL [None]
  - SKIN ULCER [None]
